FAERS Safety Report 21570185 (Version 1)
Quarter: 2022Q4

REPORT INFORMATION
  Report Type: Report from Study
  Country: US (occurrence: US)
  Receive Date: 20221109
  Receipt Date: 20221109
  Transmission Date: 20230112
  Serious: No
  Sender: FDA-Public Use
  Company Number: US-ABBVIE-4137150

PATIENT
  Sex: Male

DRUGS (2)
  1. HUMIRA [Suspect]
     Active Substance: ADALIMUMAB
     Indication: Rheumatoid arthritis
     Dosage: FORM STRENGTH: 40 MILLIGRAM
     Route: 058
  2. HUMIRA [Suspect]
     Active Substance: ADALIMUMAB
     Dosage: INCREASED DOSING?FORM STRENGTH: 40 MILLIGRAM
     Route: 058

REACTIONS (5)
  - Impaired work ability [Unknown]
  - Eye disorder [Unknown]
  - Peripheral swelling [Unknown]
  - Spinal fracture [Unknown]
  - Drug resistance [Unknown]
